FAERS Safety Report 18714570 (Version 2)
Quarter: 2021Q1

REPORT INFORMATION
  Report Type: Report from Study
  Country: US (occurrence: US)
  Receive Date: 20210108
  Receipt Date: 20210216
  Transmission Date: 20210419
  Serious: Yes (Hospitalization, Other)
  Sender: FDA-Public Use
  Company Number: US-BRISTOL-MYERS SQUIBB COMPANY-BMS-2021-000726

PATIENT
  Age: 61 Year
  Sex: Male
  Weight: 69.9 kg

DRUGS (2)
  1. NIVOLUMAB [Suspect]
     Active Substance: NIVOLUMAB
     Indication: METASTATIC RENAL CELL CARCINOMA
     Dosage: 480 MILLIGRAM, Q4WK
     Route: 042
     Dates: start: 20190625
  2. AXITINIB [Suspect]
     Active Substance: AXITINIB
     Indication: METASTATIC RENAL CELL CARCINOMA
     Dosage: 3 MILLIGRAM, QD
     Route: 048
     Dates: start: 20190611

REACTIONS (1)
  - Hyperbilirubinaemia [Unknown]

NARRATIVE: CASE EVENT DATE: 20201231
